FAERS Safety Report 8920036 (Version 1)
Quarter: 2012Q4

REPORT INFORMATION
  Report Type: 
  Country: US (occurrence: US)
  Receive Date: 20121121
  Receipt Date: 20121121
  Transmission Date: 20130627
  Serious: No
  Sender: FDA-Public Use
  Company Number: US-BRISTOL-MYERS SQUIBB COMPANY-16430175

PATIENT
  Sex: Female
  Weight: 68 kg

DRUGS (3)
  1. AVALIDE [Suspect]
     Dosage: Avalide 300mg/12.5mg every morning,Dose reduced:150mg/12.5mg.
     Dates: start: 20120224
  2. ZETIA [Concomitant]
  3. TENEX [Concomitant]
     Dosage: 1DF=1mg or 5mg.

REACTIONS (4)
  - Fatigue [Unknown]
  - Asthenia [Unknown]
  - Sensation of heaviness [Unknown]
  - Blood pressure decreased [Unknown]
